FAERS Safety Report 8055495-1 (Version None)
Quarter: 2012Q1

REPORT INFORMATION
  Report Type: 
  Country: None (occurrence: None)
  Receive Date: 20120119
  Receipt Date: 20120111
  Transmission Date: 20120608
  Serious: Yes (Other)
  Sender: FDA-Public Use
  Company Number: TW-SANOFI-AVENTIS-2012SA001771

PATIENT

DRUGS (1)
  1. ENOXAPARIN SODIUM [Suspect]
     Route: 065

REACTIONS (1)
  - THROMBOSIS IN DEVICE [None]
